FAERS Safety Report 4707938-6 (Version None)
Quarter: 2005Q2

REPORT INFORMATION
  Report Type: 
  Country: None (occurrence: None)
  Receive Date: 20050629
  Receipt Date: 20050321
  Transmission Date: 20051028
  Serious: No
  Sender: FDA-Public Use
  Company Number: 05P-163-0294678

PATIENT
  Age: 66 Year
  Sex: Female
  Weight: 87.0906 kg

DRUGS (9)
  1. HUMIRA [Suspect]
     Indication: RHEUMATOID ARTHRITIS
     Dosage: 40 MG, 1 IN 2 WK, SUBCUTANEOUS
     Route: 058
     Dates: start: 20050115
  2. NAPROSYN [Concomitant]
  3. HYDROXYCHLOROQUINE SULFATE [Concomitant]
  4. SPIRONOLACTONE [Concomitant]
  5. LISINOPRIL [Concomitant]
  6. PREDNISONE TAB [Concomitant]
  7. ASPIRIN [Concomitant]
  8. CALCIUM GLUCONATE [Concomitant]
  9. RABEPRAZOLE SODIUM [Concomitant]

REACTIONS (6)
  - ABDOMINAL DISTENSION [None]
  - ABDOMINAL PAIN UPPER [None]
  - MUSCLE SPASMS [None]
  - OEDEMA PERIPHERAL [None]
  - SKIN DISCOLOURATION [None]
  - WEIGHT INCREASED [None]
